FAERS Safety Report 7344192-3 (Version None)
Quarter: 2011Q1

REPORT INFORMATION
  Report Type: 
  Country: None (occurrence: None)
  Receive Date: 20110310
  Receipt Date: 20100809
  Transmission Date: 20110831
  Serious: No
  Sender: FDA-Public Use
  Company Number: A0874589A

PATIENT
  Age: 61 Year
  Sex: Male

DRUGS (1)
  1. WALGREENS NICOTINE LOZENGE MINT 4MG [Suspect]
     Dates: start: 20100805, end: 20100805

REACTIONS (4)
  - DYSPNOEA [None]
  - CHOKING SENSATION [None]
  - COUGH [None]
  - PRESYNCOPE [None]
